FAERS Safety Report 20855897 (Version 3)
Quarter: 2022Q3

REPORT INFORMATION
  Report Type: Spontaneous
  Country: US (occurrence: US)
  Receive Date: 20220520
  Receipt Date: 20220822
  Transmission Date: 20221026
  Serious: No
  Sender: FDA-Public Use
  Company Number: US-BRISTOL-MYERS SQUIBB COMPANY-2022-039365

PATIENT
  Age: 81 Year
  Sex: Female

DRUGS (2)
  1. POMALYST [Suspect]
     Active Substance: POMALIDOMIDE
     Indication: Panic disorder
     Dosage: FREQUENCY-1 CAPSULE BY MOUTH DAILY FOR 21 DAYS THEN TAKE 7 DAYS OFF FOR TOTAL 28 DAY CYCLE.
     Route: 048
     Dates: start: 20200508
  2. POMALYST [Suspect]
     Active Substance: POMALIDOMIDE
     Dosage: EVERY 21 DAYS
     Route: 048
     Dates: start: 20180425

REACTIONS (2)
  - Product dose omission in error [Unknown]
  - Intentional product use issue [Unknown]
